FAERS Safety Report 17866567 (Version 4)
Quarter: 2020Q3

REPORT INFORMATION
  Report Type: Spontaneous
  Country: JP (occurrence: JP)
  Receive Date: 20200605
  Receipt Date: 20200819
  Transmission Date: 20201103
  Serious: Yes (Life-Threatening, Hospitalization, Other)
  Sender: FDA-Public Use
  Company Number: JP-SA-2020SA141054

PATIENT

DRUGS (5)
  1. BEVACIZUMAB. [Suspect]
     Active Substance: BEVACIZUMAB
     Indication: RECTAL CANCER STAGE III
     Dosage: 5 MG/KG, INITIAL 90 MIN TO 60 MIN
     Route: 065
  2. CAMPTO [Suspect]
     Active Substance: IRINOTECAN
     Indication: RECTAL CANCER STAGE III
     Dosage: 150 MG/M2, Q2H
     Route: 041
  3. ELPLAT [Suspect]
     Active Substance: OXALIPLATIN
     Indication: RECTAL CANCER STAGE III
     Dosage: 85 MG/M2, QCY
     Route: 042
  4. LEVOFOLINATE CALCIUM [Suspect]
     Active Substance: LEVOLEUCOVORIN CALCIUM
     Indication: RECTAL CANCER STAGE III
     Dosage: 200 MG/M2, QH
  5. FLUOROURACIL. [Suspect]
     Active Substance: FLUOROURACIL
     Indication: RECTAL CANCER STAGE III
     Dosage: 5?FU (46 HR) 2,400 MG/M2 (EVERY 2 WEEKS)
     Route: 065

REACTIONS (3)
  - Diarrhoea [Recovering/Resolving]
  - Hyponatraemia [Unknown]
  - Hypokalaemia [Recovering/Resolving]
